FAERS Safety Report 12619219 (Version 1)
Quarter: 2016Q3

REPORT INFORMATION
  Report Type: Spontaneous
  Country: US (occurrence: US)
  Receive Date: 20160803
  Receipt Date: 20160803
  Transmission Date: 20161109
  Serious: No
  Sender: FDA-Public Use
  Company Number: US-EMD SERONO-8098983

PATIENT
  Sex: Male

DRUGS (2)
  1. AMPYRA [Concomitant]
     Active Substance: DALFAMPRIDINE
     Indication: MULTIPLE SCLEROSIS
     Dosage: 3 TO 4 YEARS AGO
     Route: 048
  2. REBIF [Suspect]
     Active Substance: INTERFERON BETA-1A
     Indication: MULTIPLE SCLEROSIS

REACTIONS (3)
  - Mobility decreased [Unknown]
  - Injection site erythema [Recovered/Resolved]
  - Injection site pain [Recovered/Resolved]
